FAERS Safety Report 8820733 (Version 1)
Quarter: 2012Q4

REPORT INFORMATION
  Report Type: 
  Country: FR (occurrence: FR)
  Receive Date: 20121002
  Receipt Date: 20121002
  Transmission Date: 20130627
  Serious: Yes (Hospitalization, Other)
  Sender: FDA-Public Use
  Company Number: FR-PFIZER INC-2012242815

PATIENT
  Age: 76 Year
  Sex: Male

DRUGS (5)
  1. CORDARONE [Suspect]
     Indication: PRODUCT USED FOR UNKNOWN INDICATION
     Dosage: UNK
     Route: 048
     Dates: end: 20110805
  2. INEXIUM [Suspect]
     Indication: PRODUCT USED FOR UNKNOWN INDICATION
     Dosage: UNK
     Route: 048
     Dates: start: 20110530, end: 20110812
  3. BURINEX [Concomitant]
     Dosage: UNK
     Dates: end: 20110726
  4. LIPANTHYL [Concomitant]
     Dosage: UNK
     Dates: end: 20110727
  5. NOVONORM [Concomitant]
     Dosage: UNK
     Dates: end: 20110728

REACTIONS (6)
  - Arthralgia [Recovered/Resolved]
  - Rash [Recovered/Resolved]
  - Transaminases increased [Recovered/Resolved]
  - Thrombocytopenia [Unknown]
  - Cholestasis [Unknown]
  - Eosinophilia [Unknown]
